FAERS Safety Report 11322381 (Version 1)
Quarter: 2015Q3

REPORT INFORMATION
  Report Type: Spontaneous
  Country: US (occurrence: None)
  Receive Date: 20150728
  Receipt Date: 20150728
  Transmission Date: 20151125
  Serious: Yes (Hospitalization, Other)
  Sender: FDA-Public Use
  Company Number: 2015HINLIT0581

PATIENT
  Age: 71 Year
  Sex: Female

DRUGS (1)
  1. HYDRALAZINE (HYDRALAZINE) UNKNOWN [Suspect]
     Active Substance: HYDRALAZINE HYDROCHLORIDE
     Indication: HYPERTENSION
     Dosage: 300 MG DAILY FOR 2 YEARS

REACTIONS (8)
  - Dysphagia [None]
  - Oropharyngeal pain [None]
  - Dysphonia [None]
  - Dermatitis bullous [None]
  - Vasculitis [None]
  - Gastrointestinal haemorrhage [None]
  - Gastrointestinal tract mucosal pigmentation [None]
  - Odynophagia [None]
